FAERS Safety Report 8421500-3 (Version None)
Quarter: 2012Q2

REPORT INFORMATION
  Report Type: 
  Country: None (occurrence: None)
  Receive Date: 20120608
  Receipt Date: 20120530
  Transmission Date: 20120825
  Serious: Yes (Death, Hospitalization)
  Sender: FDA-Public Use
  Company Number: JP-SANOFI-AVENTIS-2012SA039309

PATIENT
  Age: 59 Year
  Sex: Male

DRUGS (5)
  1. PIOGLITAZONE HCL [Concomitant]
     Indication: DIABETES MELLITUS
     Dosage: STARTED AROUND FEB 2012
     Route: 065
     Dates: start: 20120201, end: 20120405
  2. AMARYL [Suspect]
     Indication: DIABETES MELLITUS
     Route: 048
     Dates: start: 20120405, end: 20120508
  3. SITAGLIPTIN PHOSPHATE [Concomitant]
     Indication: DIABETES MELLITUS
     Dosage: STARTED AROUND FEB 2012
     Route: 065
     Dates: end: 20120508
  4. LOPEMIN [Concomitant]
     Indication: DIARRHOEA
     Route: 065
  5. ALL OTHER THERAPEUTIC PRODUCTS [Concomitant]
     Indication: DIARRHOEA
     Dosage: DOSE:3 UNIT(S)
     Route: 065

REACTIONS (3)
  - DEATH [None]
  - HYPOGLYCAEMIA [None]
  - DEPRESSED LEVEL OF CONSCIOUSNESS [None]
